FAERS Safety Report 8140911-7 (Version None)
Quarter: 2012Q1

REPORT INFORMATION
  Report Type: 
  Country: None (occurrence: None)
  Receive Date: 20120216
  Receipt Date: 20120210
  Transmission Date: 20120608
  Serious: Yes (Other)
  Sender: FDA-Public Use
  Company Number: PT-TEVA-322547ISR

PATIENT
  Age: 59 Year
  Sex: Female

DRUGS (2)
  1. VALPROIC ACID [Suspect]
     Dosage: 600 MILLIGRAM;
     Route: 048
  2. VALPROIC ACID [Suspect]
     Dosage: 600 MILLIGRAM;
     Route: 048

REACTIONS (3)
  - ACCIDENTAL OVERDOSE [None]
  - AMNESTIC DISORDER [None]
  - DISORIENTATION [None]
